FAERS Safety Report 9594581 (Version 1)
Quarter: 2013Q3

REPORT INFORMATION
  Report Type: Spontaneous
  Country: US (occurrence: None)
  Receive Date: 20130927
  Receipt Date: 20130927
  Transmission Date: 20140515
  Serious: No
  Sender: FDA-Public Use
  Company Number: CABO-13002935

PATIENT
  Age: 71 Year
  Sex: Male
  Weight: 77.5 kg

DRUGS (7)
  1. COMETRIQ [Suspect]
     Indication: THYROID CANCER
     Dates: start: 20130627
  2. DAYPRO (OXAPROZIN) [Concomitant]
  3. PLAVIX (CLOPIDOGREL BISULFATE) [Concomitant]
  4. OMEPRAZOLE (OMPRAZOLE) [Concomitant]
  5. THYROID (THYROID) [Concomitant]
  6. TAMSULOSIN (TAMSULOSIN) [Concomitant]
  7. MULTIIVITAMIN (VITAMINS NOS) [Concomitant]

REACTIONS (2)
  - Urine abnormality [None]
  - Diarrhoea [None]
